FAERS Safety Report 25722332 (Version 1)
Quarter: 2025Q3

REPORT INFORMATION
  Report Type: Spontaneous
  Country: GB (occurrence: GB)
  Receive Date: 20250825
  Receipt Date: 20250825
  Transmission Date: 20251020
  Serious: Yes (Hospitalization, Other)
  Sender: ELI LILLY AND COMPANY
  Company Number: None

PATIENT
  Age: 41 Year
  Sex: Female

DRUGS (1)
  1. MOUNJARO [Suspect]
     Active Substance: TIRZEPATIDE
     Indication: Product used for unknown indication
     Route: 065
     Dates: start: 2025, end: 202507

REACTIONS (9)
  - Splenic vein thrombosis [Unknown]
  - Metabolic acidosis [Unknown]
  - Starvation ketoacidosis [Unknown]
  - Pancreatitis acute [Recovering/Resolving]
  - Acute kidney injury [Unknown]
  - Headache [Unknown]
  - Myalgia [Unknown]
  - Muscular weakness [Unknown]
  - Fatigue [Unknown]

NARRATIVE: CASE EVENT DATE: 20250809
